FAERS Safety Report 16157402 (Version 1)
Quarter: 2019Q2

REPORT INFORMATION
  Report Type: Report from Study
  Country: BR (occurrence: BR)
  Receive Date: 20190404
  Receipt Date: 20190404
  Transmission Date: 20190711
  Serious: Yes (Hospitalization, Other)
  Sender: FDA-Public Use
  Company Number: BR-SA-2019SA088606

PATIENT
  Sex: Female

DRUGS (4)
  1. OMEPRAZOLE [OMEPRAZOLE MAGNESIUM] [Concomitant]
     Active Substance: OMEPRAZOLE MAGNESIUM
     Dosage: UNK
  2. INSULIN GLARGINE [Suspect]
     Active Substance: INSULIN GLARGINE
     Indication: TYPE 1 DIABETES MELLITUS
     Dosage: UNK
  3. SEROQUEL [Concomitant]
     Active Substance: QUETIAPINE FUMARATE
     Indication: TYPE 1 DIABETES MELLITUS
     Dosage: UNK
     Route: 065
  4. PANTOPRAZOLE [Concomitant]
     Active Substance: PANTOPRAZOLE
     Dosage: UNK

REACTIONS (13)
  - Anxiety [Unknown]
  - Neurogenic bladder [Unknown]
  - Diabetes mellitus inadequate control [Unknown]
  - Depression [Unknown]
  - Urinary incontinence [Unknown]
  - Diabetic gastroparesis [Unknown]
  - Hypoglycaemia [Unknown]
  - Autonomic nervous system imbalance [Unknown]
  - Disturbance in attention [Unknown]
  - Renal transplant [Unknown]
  - Haemodialysis [Unknown]
  - Drug ineffective [Unknown]
  - Incontinence [Unknown]
